FAERS Safety Report 4827755-6 (Version None)
Quarter: 2005Q4

REPORT INFORMATION
  Report Type: 
  Country: None (occurrence: None)
  Receive Date: 20051110
  Receipt Date: 20051026
  Transmission Date: 20060501
  Serious: Yes (Hospitalization)
  Sender: FDA-Public Use
  Company Number: 2005PV003546

PATIENT
  Age: 40 Year
  Sex: Female

DRUGS (5)
  1. SYMLIN [Suspect]
     Indication: DIABETES MELLITUS INSULIN-DEPENDENT
     Dosage: 8 UNITS;TID;SC
     Route: 058
     Dates: start: 20051016, end: 20051020
  2. LANTUS [Concomitant]
  3. HUMALOG [Concomitant]
  4. METFORMIN [Concomitant]
  5. LABETALOL [Concomitant]

REACTIONS (6)
  - ARRHYTHMIA [None]
  - BLOOD GLUCOSE DECREASED [None]
  - DIZZINESS [None]
  - LOSS OF CONSCIOUSNESS [None]
  - NAUSEA [None]
  - SYNCOPE [None]
